FAERS Safety Report 6091426-1 (Version None)
Quarter: 2009Q1

REPORT INFORMATION
  Report Type: 
  Country: None (occurrence: None)
  Receive Date: 20090219
  Receipt Date: 20090219
  Transmission Date: 20090719
  Serious: No
  Sender: FDA-Public Use
  Company Number: None

PATIENT
  Age: 55 Year
  Sex: Male
  Weight: 86.637 kg

DRUGS (6)
  1. OLANZAPINE [Suspect]
     Dosage: 30MG PO
     Route: 048
  2. CLONAZEPAM [Concomitant]
  3. LITHIUM [Concomitant]
  4. ATENOLOL [Concomitant]
  5. LORAZEPAM [Concomitant]
  6. . [Concomitant]

REACTIONS (8)
  - BLOOD PRESSURE INCREASED [None]
  - CATATONIA [None]
  - DEPRESSED LEVEL OF CONSCIOUSNESS [None]
  - EYE MOVEMENT DISORDER [None]
  - HEART RATE INCREASED [None]
  - MUSCLE RIGIDITY [None]
  - MUSCULOSKELETAL STIFFNESS [None]
  - REFUSAL OF TREATMENT BY PATIENT [None]
